FAERS Safety Report 17529650 (Version 1)
Quarter: 2020Q1

REPORT INFORMATION
  Report Type: Spontaneous
  Country: US (occurrence: US)
  Receive Date: 20200311
  Receipt Date: 20200311
  Transmission Date: 20200409
  Serious: Yes (Hospitalization)
  Sender: FDA-Public Use
  Company Number: US-TEVA-2020-US-1196861

PATIENT
  Age: 48 Year
  Sex: Male

DRUGS (3)
  1. 5-FLUOROURACIL [Suspect]
     Active Substance: FLUOROURACIL
     Indication: ADENOCARCINOMA GASTRIC
     Dosage: PART OF FOLFOX REGIMEN
     Route: 065
  2. OXALIPLATIN. [Suspect]
     Active Substance: OXALIPLATIN
     Indication: ADENOCARCINOMA GASTRIC
     Dosage: PART OF FOLFOX REGIMEN
     Route: 065
  3. LEUCOVORIN. [Suspect]
     Active Substance: LEUCOVORIN
     Indication: ADENOCARCINOMA GASTRIC
     Dosage: PART OF FOLFOX REGIMEN
     Route: 065

REACTIONS (5)
  - Disorientation [Recovering/Resolving]
  - Dysarthria [Recovering/Resolving]
  - Agitation [Recovering/Resolving]
  - Tumour lysis syndrome [Recovering/Resolving]
  - Mental status changes [Recovering/Resolving]
